FAERS Safety Report 9219464 (Version 1)
Quarter: 2013Q1

REPORT INFORMATION
  Report Type: Spontaneous
  Country: US (occurrence: None)
  Receive Date: 20120828
  Receipt Date: 20120828
  Transmission Date: 20140127
  Serious: Yes (Other)
  Sender: FDA-Public Use
  Company Number: 2012BH002818

PATIENT
  Sex: Female
  Weight: 69.54 kg

DRUGS (4)
  1. KLOVIG LIQUID SOLUTION FOR INFUSION VIAL GLASS (IMMUNOGLOBULIN,NORMAL HUMAN) (SOLUTION FOR INFUSION [Suspect]
     Indication: SELECTIVE IGG SUBCLASS DEFICIENCY
     Dosage: 1 IN 4 WEK
     Route: 042
     Dates: start: 20110808, end: 20120127
  2. WELLBUTRIN (BUPRPION HYDROCHLORIDE) [Concomitant]
  3. TYLENOL [Concomitant]
  4. BENADRYL [Concomitant]

REACTIONS (9)
  - Headache [None]
  - Pyrexia [None]
  - Nausea [None]
  - Vomiting [None]
  - Heart rate increased [None]
  - Influenza like illness [None]
  - Chills [None]
  - Flushing [None]
  - Feeling abnormal [None]
